FAERS Safety Report 8160906-7 (Version None)
Quarter: 2012Q1

REPORT INFORMATION
  Report Type: 
  Country: None (occurrence: None)
  Receive Date: 20120223
  Receipt Date: 20120217
  Transmission Date: 20120608
  Serious: Yes (Hospitalization, Other)
  Sender: FDA-Public Use
  Company Number: US-MERCK-1106USA00373

PATIENT
  Age: 65 Year
  Sex: Female
  Weight: 66 kg

DRUGS (2)
  1. FOSAMAX [Suspect]
     Indication: OSTEOPENIA
     Route: 048
     Dates: start: 20030611, end: 20060303
  2. BONIVA [Concomitant]
     Route: 048
     Dates: start: 20060303, end: 20080501

REACTIONS (27)
  - FEMUR FRACTURE [None]
  - ORAL DISCOMFORT [None]
  - ANXIETY [None]
  - MUSCULAR WEAKNESS [None]
  - OSTEOARTHRITIS [None]
  - ABASIA [None]
  - DYSPEPSIA [None]
  - SYNOVIAL CYST [None]
  - MEDICAL DEVICE COMPLICATION [None]
  - JOINT EFFUSION [None]
  - FRACTURE NONUNION [None]
  - BLOOD PRESSURE INCREASED [None]
  - CATARACT [None]
  - INTRAOCULAR LENS IMPLANT [None]
  - JOINT INJURY [None]
  - ARTERIOSCLEROSIS [None]
  - ADVERSE DRUG REACTION [None]
  - ARTHRALGIA [None]
  - SYNCOPE [None]
  - DIVERTICULUM [None]
  - HAEMORRHOIDS [None]
  - GASTROOESOPHAGEAL REFLUX DISEASE [None]
  - WRIST FRACTURE [None]
  - ASTHENIA [None]
  - SCIATICA [None]
  - DEVICE FAILURE [None]
  - FALL [None]
